FAERS Safety Report 9498017 (Version 1)
Quarter: 2013Q3

REPORT INFORMATION
  Report Type: Spontaneous
  Country: US (occurrence: US)
  Receive Date: 20130904
  Receipt Date: 20130904
  Transmission Date: 20140515
  Serious: No
  Sender: FDA-Public Use
  Company Number: US-AMGEN-USASP2013058580

PATIENT
  Age: 50 Year
  Sex: Male

DRUGS (2)
  1. ENBREL [Suspect]
     Indication: RHEUMATOID ARTHRITIS
     Dosage: 50 MG, QWK
     Route: 065
     Dates: start: 20090101, end: 20130809
  2. PLAQUENIL                          /00072603/ [Concomitant]
     Dosage: UNK

REACTIONS (2)
  - Bursitis [Not Recovered/Not Resolved]
  - Muscle spasms [Recovered/Resolved]
